FAERS Safety Report 8556458 (Version 2)
Quarter: 2012Q4

REPORT INFORMATION
  Report Type: 
  Country: US (occurrence: US)
  Receive Date: 20120510
  Receipt Date: 20120828
  Transmission Date: 20130627
  Serious: No
  Sender: FDA-Public Use
  Company Number: US-B.I. PHARMACEUTICALS,INC./RIDGEFIELD-2012-BP-09814BP

PATIENT
  Age: 58 None
  Sex: Female

DRUGS (1)
  1. IPRATROPIUM BROMIDE [Suspect]

REACTIONS (4)
  - Oral discomfort [Recovered/Resolved]
  - Throat irritation [Recovered/Resolved]
  - Dyspepsia [Recovered/Resolved]
  - Product quality issue [Unknown]
